FAERS Safety Report 23376684 (Version 1)
Quarter: 2024Q1

REPORT INFORMATION
  Report Type: Spontaneous
  Country: US (occurrence: US)
  Receive Date: 20240108
  Receipt Date: 20240108
  Transmission Date: 20240410
  Serious: Yes (Hospitalization, Disabling, Other)
  Sender: FDA-Public Use
  Company Number: US-ORGANON-O2401USA000335

PATIENT
  Sex: Female

DRUGS (1)
  1. NEXPLANON [Suspect]
     Active Substance: ETONOGESTREL
     Dosage: 1 IMPLANT,  LEFT ARM, 3 YEARS
     Route: 059
     Dates: start: 20200327

REACTIONS (5)
  - Road traffic accident [Recovered/Resolved]
  - Coma [Recovered/Resolved]
  - Hemiparesis [Not Recovered/Not Resolved]
  - Amnesia [Not Recovered/Not Resolved]
  - Incorrect product administration duration [Unknown]

NARRATIVE: CASE EVENT DATE: 20230101
